FAERS Safety Report 5335012-7 (Version None)
Quarter: 2007Q2

REPORT INFORMATION
  Report Type: 
  Country: None (occurrence: None)
  Receive Date: 20070525
  Receipt Date: 20070518
  Transmission Date: 20071010
  Serious: Yes (Life-Threatening, Hospitalization)
  Sender: FDA-Public Use
  Company Number: B0472501A

PATIENT
  Age: 56 Year
  Sex: Female

DRUGS (1)
  1. CALPOL [Suspect]
     Indication: HEADACHE
     Dosage: 2TAB PER DAY
     Route: 048
     Dates: start: 20070515, end: 20070515

REACTIONS (4)
  - FLUSHING [None]
  - MOUTH ULCERATION [None]
  - PHARMACEUTICAL PRODUCT COMPLAINT [None]
  - URTICARIA [None]
